FAERS Safety Report 7138003-9 (Version None)
Quarter: 2010Q4

REPORT INFORMATION
  Report Type: 
  Country: None (occurrence: None)
  Receive Date: 20101118
  Receipt Date: 20101109
  Transmission Date: 20110411
  Serious: Yes (Other)
  Sender: FDA-Public Use
  Company Number: DSA_44349_2010

PATIENT

DRUGS (2)
  1. VOXRA (VOXRA- BUPROPION HYDROCHLORIDE) (NOT SPECIFIED) [Suspect]
     Indication: PRODUCT USED FOR UNKNOWN INDICATION
     Dosage: (150 MG QD), (300 MG)
     Dates: start: 20100101
  2. VOXRA (VOXRA- BUPROPION HYDROCHLORIDE) (NOT SPECIFIED) [Suspect]
     Indication: PRODUCT USED FOR UNKNOWN INDICATION
     Dosage: (150 MG QD), (300 MG)
     Dates: start: 20100412

REACTIONS (3)
  - BLEEDING TIME PROLONGED [None]
  - CONTUSION [None]
  - ECCHYMOSIS [None]
